FAERS Safety Report 16551077 (Version 3)
Quarter: 2019Q4

REPORT INFORMATION
  Report Type: Report from Study
  Country: JP (occurrence: JP)
  Receive Date: 20190710
  Receipt Date: 20191010
  Transmission Date: 20200122
  Serious: Yes (Life-Threatening, Hospitalization, Other)
  Sender: FDA-Public Use
  Company Number: JP-GLAXOSMITHKLINE-JP2018JPN239592

PATIENT
  Sex: Female
  Weight: 82 kg

DRUGS (24)
  1. BELIMUMAB SUBCUTANEOUS [Suspect]
     Active Substance: BELIMUMAB
     Dosage: 200 MG, WE
     Route: 058
     Dates: end: 20190615
  2. EQUA [Concomitant]
     Active Substance: VILDAGLIPTIN
     Dosage: UNK
  3. FEBURIC TABLETS [Concomitant]
     Active Substance: FEBUXOSTAT
     Dosage: UNK
  4. BELIMUMAB SUBCUTANEOUS [Suspect]
     Active Substance: BELIMUMAB
     Indication: SYSTEMIC LUPUS ERYTHEMATOSUS
     Dosage: 200 MG, WE
     Route: 058
     Dates: start: 20180825
  5. PREDONINE [Suspect]
     Active Substance: PREDNISOLONE
     Indication: SYSTEMIC LUPUS ERYTHEMATOSUS
     Dosage: 9 MG, 1D
     Route: 048
     Dates: start: 20180414, end: 20180825
  6. ALDACTONE-A TABLETS [Concomitant]
     Dosage: UNK
  7. LUPRAC [Concomitant]
     Active Substance: TORSEMIDE
     Dosage: UNK
  8. SYMBICORT [Concomitant]
     Active Substance: BUDESONIDE\FORMOTEROL FUMARATE DIHYDRATE
     Dosage: UNK
  9. BISOPROLOL FUMARATE TABLET [Concomitant]
     Dosage: UNK
  10. EPADEL [Concomitant]
     Active Substance: ICOSAPENT
     Dosage: UNK
  11. WARFARIN (JAPANESE TRADENAME) [Concomitant]
     Active Substance: WARFARIN POTASSIUM
     Dosage: UNK
  12. DILTIAZEM HYDROCHLORIDE R [Concomitant]
     Active Substance: DILTIAZEM HYDROCHLORIDE
     Dosage: UNK
  13. INFLUENZA HA VACCINE [Concomitant]
     Active Substance: INFLUENZA VIRUS VACCINE
     Indication: PROPHYLAXIS
     Dates: start: 20181020
  14. PREDONINE [Suspect]
     Active Substance: PREDNISOLONE
     Dosage: 7 MG, 1D
     Route: 048
     Dates: start: 20180826, end: 20181020
  15. LIPITOR TABLETS [Concomitant]
     Dosage: UNK
  16. ODRIC [Concomitant]
     Active Substance: TRANDOLAPRIL
     Dosage: UNK
  17. FERROMIA TABLETS [Concomitant]
     Dosage: UNK
  18. BELIMUMAB SUBCUTANEOUS [Suspect]
     Active Substance: BELIMUMAB
     Dosage: 200 MG, WE
     Route: 058
     Dates: start: 20181021, end: 20190228
  19. TAKECAB TABLETS [Concomitant]
     Dosage: UNK
  20. URSO TABLETS [Concomitant]
     Dosage: UNK
  21. RETICOLAN [Concomitant]
     Active Substance: METHYLCOBALAMIN
     Dosage: UNK
  22. AMITIZA CAPSULE [Concomitant]
     Dosage: UNK
  23. PREDONINE [Suspect]
     Active Substance: PREDNISOLONE
     Dosage: 6 MG, 1D
     Route: 048
     Dates: start: 20181021
  24. ALFAROL CAPSULE [Concomitant]
     Dosage: UNK

REACTIONS (8)
  - Cardiac failure congestive [Not Recovered/Not Resolved]
  - Cardiac failure [Recovered/Resolved]
  - Oedema peripheral [Unknown]
  - Heart rate irregular [Unknown]
  - Dyspnoea [Unknown]
  - Hip arthroplasty [Recovered/Resolved]
  - Arthralgia [Recovered/Resolved]
  - Bronchitis [Recovering/Resolving]

NARRATIVE: CASE EVENT DATE: 20181020
